FAERS Safety Report 13668388 (Version 1)
Quarter: 2017Q2

REPORT INFORMATION
  Report Type: Spontaneous
  Country: US (occurrence: US)
  Receive Date: 20170619
  Receipt Date: 20170619
  Transmission Date: 20170830
  Serious: Yes (Disabling)
  Sender: FDA-Public Use
  Company Number: None

PATIENT
  Sex: Female
  Weight: 101.7 kg

DRUGS (11)
  1. REMICADE [Concomitant]
     Active Substance: INFLIXIMAB
  2. TRAZODONE [Concomitant]
     Active Substance: TRAZODONE HYDROCHLORIDE
  3. CLONAZEPAM. [Suspect]
     Active Substance: CLONAZEPAM
     Indication: ANXIETY
     Dosage: ?          OTHER FREQUENCY:UP TO 5 TIMES A DY;ORAL?
     Route: 048
  4. BENADRYL [Concomitant]
     Active Substance: DIPHENHYDRAMINE HYDROCHLORIDE
  5. BENTYL [Concomitant]
     Active Substance: DICYCLOMINE HYDROCHLORIDE
  6. TYLENOL [Concomitant]
     Active Substance: ACETAMINOPHEN
  7. SOLUMEDROL WITH REMICADE [Concomitant]
  8. ELMIRON [Concomitant]
     Active Substance: PENTOSAN POLYSULFATE SODIUM
  9. ZANTAC [Concomitant]
     Active Substance: RANITIDINE HYDROCHLORIDE
  10. TRAMADOL. [Concomitant]
     Active Substance: TRAMADOL
  11. ZYRTEC [Concomitant]
     Active Substance: CETIRIZINE HYDROCHLORIDE

REACTIONS (13)
  - Rhinitis allergic [None]
  - Akathisia [None]
  - Depression [None]
  - Gastrointestinal disorder [None]
  - Crohn^s disease [None]
  - Reynold^s syndrome [None]
  - Fatigue [None]
  - Weight decreased [None]
  - Headache [None]
  - Pain [None]
  - Cystitis interstitial [None]
  - Night sweats [None]
  - Post-traumatic stress disorder [None]
